FAERS Safety Report 7568129-7 (Version None)
Quarter: 2011Q2

REPORT INFORMATION
  Report Type: 
  Country: None (occurrence: None)
  Receive Date: 20110616
  Receipt Date: 20110609
  Transmission Date: 20111010
  Serious: Yes (Other)
  Sender: FDA-Public Use
  Company Number: 2011SP027100

PATIENT
  Age: 86 Year
  Sex: Male

DRUGS (6)
  1. AMANTADINE HCL [Concomitant]
  2. MIRTAZAPINE [Suspect]
     Indication: RESTLESSNESS
     Dosage: 15 MG;QD;PO
     Route: 048
     Dates: start: 20110517
  3. IMIDAPRIL HDYROCHLORIDE [Concomitant]
  4. DONEPEZIL HYDROCHLORIDE [Concomitant]
  5. IFENPRODIL TARTRATE [Concomitant]
  6. L-CARBOCISTEINE [Concomitant]

REACTIONS (2)
  - ALTERED STATE OF CONSCIOUSNESS [None]
  - SPEECH DISORDER [None]
